FAERS Safety Report 20771257 (Version 2)
Quarter: 2022Q2

REPORT INFORMATION
  Report Type: Spontaneous
  Country: US (occurrence: US)
  Receive Date: 20220429
  Receipt Date: 20220603
  Transmission Date: 20220720
  Serious: Yes (Disabling, Other)
  Sender: FDA-Public Use
  Company Number: US-BAUSCH-BL-2022-009914

PATIENT
  Sex: Male

DRUGS (3)
  1. PYRIDOSTIGMINE BROMIDE [Suspect]
     Active Substance: PYRIDOSTIGMINE BROMIDE
     Indication: Constipation
     Route: 048
     Dates: start: 202112, end: 202204
  2. PYRIDOSTIGMINE BROMIDE [Suspect]
     Active Substance: PYRIDOSTIGMINE BROMIDE
     Indication: Product use in unapproved indication
  3. ARMOUR THYROID [Concomitant]
     Active Substance: THYROID, PORCINE
     Indication: Product used for unknown indication

REACTIONS (12)
  - Cholecystitis infective [Unknown]
  - Arthralgia [Unknown]
  - Blood calcium decreased [Unknown]
  - Pain in extremity [Unknown]
  - Bone pain [Unknown]
  - Neuralgia [Unknown]
  - Inflammation [Unknown]
  - Weight increased [Unknown]
  - Purpura [Unknown]
  - Treatment noncompliance [Unknown]
  - Product use in unapproved indication [Unknown]
  - Drug ineffective for unapproved indication [Unknown]

NARRATIVE: CASE EVENT DATE: 20211201
